FAERS Safety Report 5839405-0 (Version None)
Quarter: 2008Q3

REPORT INFORMATION
  Report Type: 
  Country: None (occurrence: None)
  Receive Date: 20080806
  Receipt Date: 20080723
  Transmission Date: 20090109
  Serious: Yes (Other)
  Sender: FDA-Public Use
  Company Number: JPI-P-004215

PATIENT
  Sex: Male

DRUGS (3)
  1. XYREM [Suspect]
     Indication: DRUG USE FOR UNKNOWN INDICATION
     Dosage: ORAL
     Route: 048
     Dates: start: 20070101
  2. MODAFINIL (MODAFINIL) [Concomitant]
  3. UNSPECIFIED HYPERTENSIVE AGENT (ANTIHYPERTENSIVES) [Concomitant]

REACTIONS (2)
  - ANGINA PECTORIS [None]
  - HYPERTENSION [None]
